FAERS Safety Report 8158353-7 (Version None)
Quarter: 2012Q1

REPORT INFORMATION
  Report Type: 
  Country: None (occurrence: None)
  Receive Date: 20120217
  Receipt Date: 20111227
  Transmission Date: 20120608
  Serious: Yes (Hospitalization)
  Sender: FDA-Public Use
  Company Number: 001079514

PATIENT
  Sex: Female

DRUGS (1)
  1. PROACTIV 90 DAY KIT (PA90) [Suspect]
     Indication: ACNE
     Dosage: DAILY

REACTIONS (1)
  - URTICARIA [None]
